FAERS Safety Report 11776245 (Version 2)
Quarter: 2016Q1

REPORT INFORMATION
  Report Type: Spontaneous
  Country: US (occurrence: US)
  Receive Date: 20151125
  Receipt Date: 20160203
  Transmission Date: 20160525
  Serious: No
  Sender: FDA-Public Use
  Company Number: US-LEO PHARMA-238460

PATIENT
  Age: 54 Year
  Sex: Female

DRUGS (1)
  1. PICATO [Suspect]
     Active Substance: INGENOL MEBUTATE
     Indication: PRECANCEROUS SKIN LESION
     Route: 061
     Dates: start: 20151111, end: 20151111

REACTIONS (6)
  - Application site vesicles [Recovered/Resolved]
  - Application site exfoliation [Recovered/Resolved]
  - Application site erosion [Recovered/Resolved]
  - Drug administration error [Unknown]
  - Application site pain [Recovered/Resolved]
  - Incorrect drug administration duration [Unknown]

NARRATIVE: CASE EVENT DATE: 20151112
